FAERS Safety Report 12934600 (Version 3)
Quarter: 2016Q4

REPORT INFORMATION
  Report Type: Spontaneous
  Country: TW (occurrence: TW)
  Receive Date: 20161111
  Receipt Date: 20161207
  Transmission Date: 20170207
  Serious: Yes (Other)
  Sender: FDA-Public Use
  Company Number: PHHY2016TW154544

PATIENT
  Age: 65 Year
  Sex: Male

DRUGS (5)
  1. RANIBIZUMAB [Suspect]
     Active Substance: RANIBIZUMAB
     Indication: PRODUCT USED FOR UNKNOWN INDICATION
     Dosage: INTRAVITREAL INJECTION
     Route: 065
  2. BEVACIZUMAB [Suspect]
     Active Substance: BEVACIZUMAB
     Dosage: INTRAVITREAL, AFTER 1 HOUR OF PHOTODYNAMIC THERAPY (1.25 MG), QD
     Route: 065
  3. VERTEPORFIN [Interacting]
     Active Substance: VERTEPORFIN
     Indication: PRODUCT USED FOR UNKNOWN INDICATION
     Dosage: INTRAVENOUS INFUSION OF 30 ML OVER 10 MINUTES (6 MG/M2)
     Route: 041
  4. BEVACIZUMAB [Suspect]
     Active Substance: BEVACIZUMAB
     Indication: PRODUCT USED FOR UNKNOWN INDICATION
     Dosage: 1.25 MG, QD (INTRAVITREAL 7 INJECTIONS)
     Route: 050
  5. FLUORESCEINE 10% FAURE [Suspect]
     Active Substance: FLUORESCEIN SODIUM
     Indication: ANGIOGRAM RETINA
     Dosage: UNK
     Route: 042

REACTIONS (3)
  - Drug interaction [Recovered/Resolved]
  - Macular oedema [Recovered/Resolved]
  - Blindness [Recovered/Resolved]
